FAERS Safety Report 9278161 (Version 2)
Quarter: 2013Q3

REPORT INFORMATION
  Report Type: Report from Study
  Country: FR (occurrence: FR)
  Receive Date: 20130508
  Receipt Date: 20130716
  Transmission Date: 20140515
  Serious: Yes (Hospitalization)
  Sender: FDA-Public Use
  Company Number: PHHO2013FR006156

PATIENT
  Age: 74 Year
  Sex: Male
  Weight: 58 kg

DRUGS (2)
  1. RITUXIMAB [Suspect]
     Indication: NON-HODGKIN^S LYMPHOMA
     Dosage: UNK
     Dates: start: 20121030, end: 20130320
  2. AFINITOR [Suspect]
     Indication: NON-HODGKIN^S LYMPHOMA
     Dosage: 5 MG, EVERY OTHER DAY
     Dates: start: 20121030, end: 20130410

REACTIONS (1)
  - Cerebral ischaemia [Recovered/Resolved with Sequelae]
